FAERS Safety Report 6855793-0 (Version None)
Quarter: 2010Q3

REPORT INFORMATION
  Report Type: 
  Country: None (occurrence: None)
  Receive Date: 20100719
  Receipt Date: 20100618
  Transmission Date: 20110219
  Serious: No
  Sender: FDA-Public Use
  Company Number: US-BAYER-201017279BCC

PATIENT
  Age: 76 Year
  Sex: Male
  Weight: 104 kg

DRUGS (9)
  1. ALEVE [Suspect]
     Indication: PRODUCT USED FOR UNKNOWN INDICATION
     Dosage: UNIT DOSE: 220 MG
     Route: 048
     Dates: start: 20100614, end: 20100617
  2. TRIPLE STRENGTH GLUCOSAMINE [Concomitant]
     Route: 065
  3. ALLOPURINOL [Concomitant]
     Route: 065
  4. DIGOXIN [Concomitant]
     Route: 065
  5. WARFARIN SODIUM [Concomitant]
     Route: 065
  6. DERAPMAL [Concomitant]
     Route: 065
  7. CHONDROITIN [Concomitant]
     Route: 065
  8. COTH [Concomitant]
     Route: 065
  9. ADVAIR DISKUS 100/50 [Concomitant]
     Route: 065

REACTIONS (1)
  - PRURITUS [None]
